FAERS Safety Report 18045425 (Version 2)
Quarter: 2020Q3

REPORT INFORMATION
  Report Type: Spontaneous
  Country: US (occurrence: US)
  Receive Date: 20200720
  Receipt Date: 20200727
  Transmission Date: 20201103
  Serious: No
  Sender: FDA-Public Use
  Company Number: US-PFIZER INC-2020227089

PATIENT
  Age: 15 Year
  Sex: Male
  Weight: 49.89 kg

DRUGS (1)
  1. GENOTROPIN [Suspect]
     Active Substance: SOMATROPIN
     Indication: GROWTH HORMONE DEFICIENCY
     Dosage: UNK
     Dates: start: 2019

REACTIONS (4)
  - Product dose omission issue [Unknown]
  - Myalgia [Unknown]
  - Arthralgia [Unknown]
  - Device issue [Unknown]
